FAERS Safety Report 25090728 (Version 1)
Quarter: 2025Q1

REPORT INFORMATION
  Report Type: Spontaneous
  Country: US (occurrence: None)
  Receive Date: 20250318
  Receipt Date: 20250318
  Transmission Date: 20250409
  Serious: Yes (Life-Threatening, Hospitalization, Disabling)
  Sender: FDA-CTU
  Company Number: None

PATIENT
  Age: 35 Year
  Sex: Female

DRUGS (2)
  1. SPRAVATO [Suspect]
     Active Substance: ESKETAMINE
     Indication: Depression
     Route: 045
     Dates: end: 20250306
  2. SPRAVATO [Concomitant]
     Active Substance: ESKETAMINE
     Dates: end: 20250306

REACTIONS (8)
  - Withdrawal syndrome [None]
  - Periorbital swelling [None]
  - Malaise [None]
  - Unresponsive to stimuli [None]
  - Sedation [None]
  - Coma [None]
  - Brain injury [None]
  - Ammonia increased [None]

NARRATIVE: CASE EVENT DATE: 20250311
